FAERS Safety Report 5461043-2 (Version None)
Quarter: 2007Q3

REPORT INFORMATION
  Report Type: 
  Country: None (occurrence: None)
  Receive Date: 20070820
  Receipt Date: 20060718
  Transmission Date: 20080115
  Serious: Yes (Other)
  Sender: FDA-Public Use
  Company Number: 2006087673

PATIENT
  Age: 37 Year
  Sex: Male
  Weight: 83.9154 kg

DRUGS (1)
  1. ROGAINE [Suspect]
     Indication: ALOPECIA
     Dosage: 1 ML, ONCE A DAY TOPICAL
     Route: 061
     Dates: start: 20060501

REACTIONS (4)
  - APPLICATION SITE DRYNESS [None]
  - CHEST PAIN [None]
  - HEART RATE INCREASED [None]
  - OEDEMA PERIPHERAL [None]
